FAERS Safety Report 12488074 (Version 1)
Quarter: 2016Q2

REPORT INFORMATION
  Report Type: Spontaneous
  Country: US (occurrence: US)
  Receive Date: 20160622
  Receipt Date: 20160622
  Transmission Date: 20160815
  Serious: No
  Sender: FDA-Public Use
  Company Number: US-MYLANLABS-2015M1034307

PATIENT
  Sex: Female

DRUGS (1)
  1. VALACICLOVIR [Suspect]
     Active Substance: VALACYCLOVIR HYDROCHLORIDE
     Indication: HERPES ZOSTER
     Dosage: 1 G, TID
     Route: 048
     Dates: end: 20150929

REACTIONS (3)
  - Headache [Recovered/Resolved]
  - Abdominal distension [Not Recovered/Not Resolved]
  - Abdominal pain upper [Recovered/Resolved]
